FAERS Safety Report 9454367 (Version 3)
Quarter: 2013Q3

REPORT INFORMATION
  Report Type: Spontaneous
  Country: JP (occurrence: JP)
  Receive Date: 20130812
  Receipt Date: 20130905
  Transmission Date: 20140515
  Serious: Yes (Life-Threatening, Other)
  Sender: FDA-Public Use
  Company Number: JP-BRISTOL-MYERS SQUIBB COMPANY-19161124

PATIENT
  Age: 53 Year
  Sex: Female

DRUGS (8)
  1. ORENCIA FOR INJ [Suspect]
     Indication: RHEUMATIC DISORDER
     Dosage: LAST DOSE PRIOR TO AE: 13-FEB-2013
     Route: 041
     Dates: start: 20120626
  2. RHEUMATREX [Concomitant]
     Indication: RHEUMATOID ARTHRITIS
     Dosage: 8 MG/WEEK
     Route: 048
     Dates: start: 20110928, end: 20130312
  3. BAKTAR [Concomitant]
     Indication: PROPHYLAXIS
     Dosage: TABS?2 TABS*3/WK
     Route: 048
     Dates: start: 20110928
  4. PREDNISOLONE [Concomitant]
     Indication: RHEUMATOID ARTHRITIS
     Dosage: TABS
     Route: 048
     Dates: start: 20110928
  5. CELECOXIB [Concomitant]
     Dosage: TABS
     Route: 048
     Dates: start: 20110928, end: 20130312
  6. FOLIAMIN [Concomitant]
     Indication: PROPHYLAXIS
     Dosage: TABS
     Route: 048
     Dates: start: 20110928, end: 20130312
  7. ISCOTIN [Concomitant]
     Indication: PROPHYLAXIS
     Dosage: TABS
     Route: 048
     Dates: start: 20120607, end: 20130312
  8. PYRIDOXAL PHOSPHATE [Concomitant]
     Indication: PROPHYLAXIS
     Dosage: POWDER
     Route: 048
     Dates: start: 20120606, end: 20130312

REACTIONS (3)
  - Pancreatic carcinoma [Not Recovered/Not Resolved]
  - Jaundice cholestatic [Unknown]
  - Hepatic function abnormal [Unknown]
